FAERS Safety Report 12717056 (Version 2)
Quarter: 2016Q3

REPORT INFORMATION
  Report Type: Spontaneous
  Country: JP (occurrence: JP)
  Receive Date: 20160906
  Receipt Date: 20160915
  Transmission Date: 20161109
  Serious: No
  Sender: FDA-Public Use
  Company Number: JP-ASTELLAS-2016JP014720AA

PATIENT
  Age: 72 Year
  Sex: Female

DRUGS (1)
  1. BETANIS [Suspect]
     Active Substance: MIRABEGRON
     Indication: HYPERTONIC BLADDER
     Route: 048
     Dates: start: 20160531

REACTIONS (2)
  - Dry mouth [Recovering/Resolving]
  - Nasal dryness [Recovering/Resolving]
